FAERS Safety Report 8391636-4 (Version None)
Quarter: 2012Q2

REPORT INFORMATION
  Report Type: 
  Country: None (occurrence: None)
  Receive Date: 20120529
  Receipt Date: 20120521
  Transmission Date: 20120825
  Serious: Yes (Hospitalization)
  Sender: FDA-Public Use
  Company Number: US-ELI_LILLY_AND_COMPANY-US201108003198

PATIENT
  Sex: Male
  Weight: 57.7 kg

DRUGS (17)
  1. DIPHENHYDRAMINE HCL [Concomitant]
     Dosage: UNK
     Dates: start: 20110802, end: 20110802
  2. PROCHLORPERAZINE [Concomitant]
     Indication: PROPHYLAXIS OF NAUSEA AND VOMITING
     Dosage: UNK
     Dates: start: 20110802
  3. FENTANYL-100 [Concomitant]
     Indication: PAIN
     Dosage: UNK
     Dates: start: 20110702
  4. CARBOPLATIN [Suspect]
     Indication: HEAD AND NECK CANCER
     Dosage: 5 AUC, DAY 1
     Route: 042
     Dates: start: 20110802
  5. DIPHENHYDRAMINE HCL [Concomitant]
     Indication: ORAL PAIN
     Dosage: UNK
     Dates: start: 20110703
  6. NYSTATIN [Concomitant]
     Indication: FUNGAL INFECTION
     Dosage: UNK
     Dates: start: 20101206
  7. ONDANSETRON [Concomitant]
     Indication: PROPHYLAXIS OF NAUSEA AND VOMITING
     Dosage: UNK
     Dates: start: 20110802
  8. CETUXIMAB [Suspect]
     Dosage: 400 MG/M2, DAY 1 OF CYCLE 1 ONLY
     Route: 042
     Dates: start: 20110817
  9. SENNOSIDE [Concomitant]
     Dosage: UNK
     Dates: start: 20110603
  10. CETUXIMAB [Suspect]
     Indication: HEAD AND NECK CANCER
     Dosage: 400 MG/M2, DAY 1 OF CYCLE 1 ONLY
     Route: 042
     Dates: start: 20110802
  11. FLUOROURACIL [Suspect]
     Indication: HEAD AND NECK CANCER
     Dosage: 1000 MG/M2, DAY 1- 4
     Route: 042
     Dates: start: 20110802
  12. CARBOPLATIN [Suspect]
     Dosage: UNK UNK, 20% DECREASE
     Route: 042
     Dates: start: 20110824
  13. HYDROCODONE BITARTRATE [Concomitant]
     Indication: PAIN
     Dosage: UNK
     Dates: start: 20110718
  14. MEGESTROL ACETATE [Concomitant]
     Indication: APPETITE DISORDER
     Dosage: UNK
     Dates: start: 20101206
  15. DEXAMETHASONE [Concomitant]
     Indication: NAUSEA
     Dosage: UNK
     Dates: start: 20110802, end: 20110802
  16. FLUOROURACIL [Suspect]
     Dosage: UNK, 20% DECREASE
     Route: 042
     Dates: start: 20110824
  17. CLINDAMYCIN [Concomitant]
     Indication: RASH
     Dosage: UNK
     Dates: start: 20110802

REACTIONS (5)
  - FEBRILE NEUTROPENIA [None]
  - DIARRHOEA [None]
  - NAUSEA [None]
  - VOMITING [None]
  - ANAEMIA [None]
